FAERS Safety Report 7251759-X (Version None)
Quarter: 2011Q1

REPORT INFORMATION
  Report Type: 
  Country: None (occurrence: None)
  Receive Date: 20110128
  Receipt Date: 20110121
  Transmission Date: 20110831
  Serious: Yes (Other)
  Sender: FDA-Public Use
  Company Number: US-US-EMD SERONO, INC.-235031J09USA

PATIENT
  Sex: Female
  Weight: 99 kg

DRUGS (4)
  1. LIPITOR [Concomitant]
     Indication: HYPERLIPIDAEMIA
     Dates: start: 20080101
  2. REBIF [Suspect]
     Indication: MULTIPLE SCLEROSIS
     Route: 058
     Dates: start: 20071117
  3. PROZAC [Concomitant]
     Indication: DEPRESSION
     Dates: start: 20070101
  4. DIOVAN [Concomitant]
     Indication: HYPERTENSION
     Dates: start: 20080101

REACTIONS (2)
  - DIABETES MELLITUS [None]
  - TREMOR [None]
